FAERS Safety Report 10192507 (Version 2)
Quarter: 2014Q2

REPORT INFORMATION
  Report Type: Report from Study
  Country: CA (occurrence: CA)
  Receive Date: 20140523
  Receipt Date: 20140602
  Transmission Date: 20141212
  Serious: Yes (Death, Other)
  Sender: FDA-Public Use
  Company Number: PHHY2014CA063050

PATIENT
  Age: 73 Year
  Sex: Female

DRUGS (9)
  1. ACLASTA [Suspect]
     Indication: OSTEOPOROSIS
     Dosage: 5 MG/100 ML, UNK
     Route: 042
     Dates: start: 20130815
  2. FUROSEMIDE [Concomitant]
     Dosage: 40 MG, UNK
  3. DILTIAZEM [Concomitant]
     Dosage: 30 MG, TID
  4. EFEXOR XR [Concomitant]
     Dosage: 75 MG, UNK
  5. ELTROXIN [Concomitant]
     Dosage: 100 UG, UNK
  6. PREDNISONE [Concomitant]
     Dosage: 5 MG, UNK
  7. COUMADINE [Concomitant]
     Dosage: UNK UKN, UNK
  8. SPIRONOLACTONE [Concomitant]
     Dosage: 2 DF, BID
  9. BISOPROLOL [Concomitant]
     Dosage: 5 MG, UNK

REACTIONS (5)
  - Respiratory failure [Fatal]
  - Sepsis [Fatal]
  - Pneumonia [Fatal]
  - Pulmonary oedema [Unknown]
  - Clostridium difficile infection [Unknown]
